FAERS Safety Report 6715150-4 (Version None)
Quarter: 2010Q2

REPORT INFORMATION
  Report Type: 
  Country: None (occurrence: None)
  Receive Date: 20100507
  Receipt Date: 20100427
  Transmission Date: 20101027
  Serious: Yes (Other)
  Sender: FDA-Public Use
  Company Number: US-PFIZER INC-2010041117

PATIENT
  Sex: Male
  Weight: 113.38 kg

DRUGS (12)
  1. SERTRALINE HCL [Suspect]
     Indication: ANXIETY
     Dosage: 300 MG, 1X/DAY
     Route: 048
     Dates: end: 20100331
  2. SERTRALINE HCL [Interacting]
     Dosage: 200 MG, 1X/DAY AT HS
     Route: 048
     Dates: start: 20100401
  3. CLOZAPINE [Interacting]
     Indication: SCHIZOPHRENIA
     Dosage: 300 MG, 1X/DAY AT HS
     Route: 048
  4. NOVOLOG [Concomitant]
     Dosage: UNK
  5. TRAMADOL [Concomitant]
     Dosage: FREQUENCY: AS NEEDED,
     Route: 048
     Dates: end: 20100222
  6. ACETAMINOPHEN, ASPIRIN AND CAFFEINE [Concomitant]
     Dosage: FREQUENCY: AS NEEDED,
     Route: 048
  7. ARTANE [Concomitant]
     Dosage: 5 MG, 2X/DAY
     Route: 048
  8. TRIFLUOPERAZINE [Concomitant]
     Dosage: 1 MG, 2X/DAY
     Route: 048
  9. BUSPAR [Concomitant]
     Dosage: 20 MG, 3X/DAY
     Route: 048
  10. SIMVASTATIN [Concomitant]
     Dosage: 20 MG, 1X/DAY
     Route: 048
  11. BETAMETHASONE DIPROPIONATE [Concomitant]
     Indication: STOMATITIS
     Dosage: FREQUENCY: 2X/DAY,
     Route: 061
  12. VISTARIL [Concomitant]
     Dosage: 25 MG, 3X/DAY
     Route: 048

REACTIONS (3)
  - BLOOD GLUCOSE INCREASED [None]
  - DRUG INTERACTION [None]
  - DRUG LEVEL INCREASED [None]
